FAERS Safety Report 6836305-4 (Version None)
Quarter: 2010Q3

REPORT INFORMATION
  Report Type: 
  Country: None (occurrence: None)
  Receive Date: 20100713
  Receipt Date: 20100705
  Transmission Date: 20110219
  Serious: Yes (Hospitalization)
  Sender: FDA-Public Use
  Company Number: FR-ASTRAZENECA-2010SE31743

PATIENT
  Age: 6420 Day
  Sex: Female

DRUGS (11)
  1. NEXIUM [Suspect]
     Route: 048
     Dates: start: 20100422, end: 20100422
  2. DIPRIVAN [Suspect]
     Indication: GENERAL ANAESTHESIA
     Dosage: SINGLE DOSE
     Route: 042
     Dates: start: 20100422, end: 20100422
  3. PROFENID [Suspect]
     Dates: start: 20100422, end: 20100422
  4. BIPROFENID [Suspect]
     Route: 048
     Dates: start: 20100422, end: 20100422
  5. PYOSTACINE [Suspect]
     Route: 048
     Dates: start: 20100322, end: 20100425
  6. SUFENTA PRESERVATIVE FREE [Suspect]
     Indication: GENERAL ANAESTHESIA
     Dosage: SINGLE DOSE
     Dates: start: 20100422, end: 20100422
  7. KETAMINE [Suspect]
     Indication: GENERAL ANAESTHESIA
     Dates: start: 20100422, end: 20100422
  8. ACUPAN [Suspect]
     Dates: start: 20100422, end: 20100422
  9. PERFALGAN [Suspect]
     Dates: start: 20100422, end: 20100422
  10. DI ANTALVIC [Suspect]
     Route: 048
     Dates: start: 20100422, end: 20100422
  11. DAFALGAN [Suspect]
     Dates: start: 20100422

REACTIONS (1)
  - RENAL FAILURE ACUTE [None]
